FAERS Safety Report 5325935-7 (Version None)
Quarter: 2007Q2

REPORT INFORMATION
  Report Type: 
  Country: None (occurrence: None)
  Receive Date: 20070514
  Receipt Date: 20070514
  Transmission Date: 20071010
  Serious: Yes (Other)
  Sender: FDA-Public Use
  Company Number: None

PATIENT
  Sex: Female
  Weight: 77.1115 kg

DRUGS (2)
  1. CEFTRIAXONE [Suspect]
     Indication: LYME DISEASE
     Dosage: 2 GM Q24H IV PUSH
     Route: 042
     Dates: start: 20070427, end: 20070509
  2. CEFTRIAXONE [Suspect]
     Indication: MENINGITIS
     Dosage: 2 GM Q24H IV PUSH
     Route: 042
     Dates: start: 20070427, end: 20070509

REACTIONS (4)
  - FEELING HOT [None]
  - HYPERSENSITIVITY [None]
  - PRURITUS [None]
  - RASH ERYTHEMATOUS [None]
